FAERS Safety Report 20675352 (Version 2)
Quarter: 2023Q2

REPORT INFORMATION
  Report Type: Report from Study
  Country: US (occurrence: US)
  Receive Date: 20220405
  Receipt Date: 20230420
  Transmission Date: 20230722
  Serious: No
  Sender: FDA-Public Use
  Company Number: US-BEH-2022143539

PATIENT
  Age: 78 Year
  Sex: Female
  Weight: 64.399 kg

DRUGS (10)
  1. HIZENTRA [Suspect]
     Active Substance: HUMAN IMMUNOGLOBULIN G
     Indication: Chronic inflammatory demyelinating polyradiculoneuropathy
     Dosage: 24 GRAM
     Route: 065
     Dates: start: 202002
  2. HIZENTRA [Suspect]
     Active Substance: HUMAN IMMUNOGLOBULIN G
     Indication: Multifocal motor neuropathy
     Dosage: 24 GRAM, EVERY MONDAY
     Route: 058
     Dates: start: 20201124
  3. CORTISONE [Suspect]
     Active Substance: CORTISONE
  4. ASPIRIN [Concomitant]
     Active Substance: ASPIRIN
     Dosage: 81 MILLIGRAM
  5. RESTASIS [Concomitant]
     Active Substance: CYCLOSPORINE
  6. ESTRING [Concomitant]
     Active Substance: ESTRADIOL
  7. FOSAMAX [Concomitant]
     Active Substance: ALENDRONATE SODIUM
  8. AVAPRO [Concomitant]
     Active Substance: IRBESARTAN
  9. PREGABALIN [Concomitant]
     Active Substance: PREGABALIN
  10. SYNTHROID [Concomitant]
     Active Substance: LEVOTHYROXINE SODIUM

REACTIONS (9)
  - Weight increased [Recovering/Resolving]
  - Localised oedema [Unknown]
  - Chest discomfort [Recovering/Resolving]
  - No adverse event [Unknown]
  - Off label use [Unknown]
  - Respiration abnormal [Unknown]
  - Gait disturbance [Unknown]
  - Infusion site pain [Unknown]
  - Scoliosis [Unknown]
